FAERS Safety Report 9602385 (Version 1)
Quarter: 2013Q4

REPORT INFORMATION
  Report Type: Spontaneous
  Country: US (occurrence: US)
  Receive Date: 20131007
  Receipt Date: 20131007
  Transmission Date: 20140711
  Serious: No
  Sender: FDA-Public Use
  Company Number: US-GLAXOSMITHKLINE-A1038951A

PATIENT
  Age: 23 Year
  Sex: Female

DRUGS (6)
  1. BENLYSTA [Suspect]
     Indication: SYSTEMIC LUPUS ERYTHEMATOSUS
     Dosage: 1MG MONTHLY
     Route: 042
     Dates: end: 201307
  2. PREDNISONE [Concomitant]
  3. HYDROXYCHLOROQUINE [Concomitant]
  4. TOPIRAMATE [Concomitant]
  5. ASPIRIN [Concomitant]
  6. TYLENOL 3 [Concomitant]

REACTIONS (1)
  - Drug ineffective [Unknown]
